FAERS Safety Report 18327514 (Version 1)
Quarter: 2020Q3

REPORT INFORMATION
  Report Type: Report from Study
  Country: CA (occurrence: CA)
  Receive Date: 20200929
  Receipt Date: 20200929
  Transmission Date: 20201103
  Serious: Yes (Hospitalization)
  Sender: FDA-Public Use
  Company Number: CA-JNJFOC-20200843565

PATIENT
  Sex: Female

DRUGS (1)
  1. REMICADE [Suspect]
     Active Substance: INFLIXIMAB
     Indication: ANKYLOSING SPONDYLITIS
     Dosage: RESCHEDULED APPOINTMENT TO 16?SEP?2020 AT 1:30PM
     Route: 042

REACTIONS (2)
  - Hernia [Recovering/Resolving]
  - Fungal infection [Unknown]
